FAERS Safety Report 5759854-9 (Version None)
Quarter: 2008Q2

REPORT INFORMATION
  Report Type: 
  Country: None (occurrence: None)
  Receive Date: 20080605
  Receipt Date: 20080529
  Transmission Date: 20081010
  Serious: Yes (Other)
  Sender: FDA-Public Use
  Company Number: PHHY2008BR09499

PATIENT
  Sex: Female
  Weight: 56 kg

DRUGS (4)
  1. FORADIL [Suspect]
     Indication: ASTHMA
     Dosage: UNK
     Dates: start: 20071201
  2. METICORTEN [Concomitant]
     Indication: COUGH
     Dosage: UNK
     Dates: end: 19950101
  3. LEXOTAN [Concomitant]
     Dosage: 1TAB/NIGHT WHEN NEEDED
  4. SYMBICORT [Concomitant]

REACTIONS (5)
  - ASTHMA [None]
  - COUGH [None]
  - PHYSIOTHERAPY CHEST [None]
  - SYNCOPE [None]
  - TACHYCARDIA [None]
